FAERS Safety Report 11435989 (Version 1)
Quarter: 2015Q3

REPORT INFORMATION
  Report Type: Spontaneous
  Country: US (occurrence: US)
  Receive Date: 20150821
  Receipt Date: 20150821
  Transmission Date: 20151125
  Serious: No
  Sender: FDA-Public Use
  Company Number: US-ELI_LILLY_AND_COMPANY-US201402003883

PATIENT
  Age: 68 Year
  Sex: Male

DRUGS (2)
  1. HUMULIN 70/30 [Suspect]
     Active Substance: INSULIN HUMAN
     Dosage: 50 U, EACH EVENING
     Route: 065
     Dates: start: 2000
  2. HUMULIN 70/30 [Suspect]
     Active Substance: INSULIN HUMAN
     Indication: TYPE 1 DIABETES MELLITUS
     Dosage: 100 U, EACH MORNING
     Route: 065
     Dates: start: 2000

REACTIONS (4)
  - Influenza [Unknown]
  - Arthralgia [Unknown]
  - Cold sweat [Unknown]
  - Chills [Unknown]

NARRATIVE: CASE EVENT DATE: 20140210
